FAERS Safety Report 6270670-4 (Version None)
Quarter: 2009Q3

REPORT INFORMATION
  Report Type: 
  Country: None (occurrence: None)
  Receive Date: 20090716
  Receipt Date: 20090702
  Transmission Date: 20100115
  Serious: Yes (Other)
  Sender: FDA-Public Use
  Company Number: PHHY2009AU17956

PATIENT
  Sex: Male

DRUGS (5)
  1. CLOZARIL [Suspect]
     Indication: SCHIZOPHRENIA
     Dosage: 250 MG, QD
     Dates: start: 20090307, end: 20090507
  2. CLOZARIL [Suspect]
     Dosage: 12.5 MG/DAY
     Dates: start: 20090407
  3. RISPERIDONE [Concomitant]
     Indication: PSYCHOTIC DISORDER
     Dosage: 6 MG/DAY
     Route: 048
     Dates: start: 20081023
  4. QUETIAPINE FUMARATE [Concomitant]
     Indication: PSYCHOTIC DISORDER
     Dosage: 100 MG, PRN
     Dates: start: 20081023
  5. BETA BLOCKING AGENTS [Concomitant]

REACTIONS (9)
  - BLOOD CREATINE PHOSPHOKINASE DECREASED [None]
  - BUNDLE BRANCH BLOCK RIGHT [None]
  - CARDIAC DISORDER [None]
  - ELECTROCARDIOGRAM ABNORMAL [None]
  - ELECTROCARDIOGRAM QT PROLONGED [None]
  - OROPHARYNGEAL PAIN [None]
  - PERICARDIAL EFFUSION [None]
  - SINUS TACHYCARDIA [None]
  - TROPONIN T INCREASED [None]
